FAERS Safety Report 7000402-3 (Version None)
Quarter: 2010Q3

REPORT INFORMATION
  Report Type: 
  Country: None (occurrence: None)
  Receive Date: 20100920
  Receipt Date: 20091215
  Transmission Date: 20110219
  Serious: No
  Sender: FDA-Public Use
  Company Number: US-ASTRAZENECA-2009SE32185

PATIENT
  Age: 31 Year
  Sex: Male
  Weight: 95.3 kg

DRUGS (3)
  1. SEROQUEL [Suspect]
     Indication: SLEEP DISORDER
     Route: 048
     Dates: start: 20090701
  2. SEROQUEL [Suspect]
     Indication: ANXIETY
     Route: 048
     Dates: start: 20090701
  3. VALIUM [Concomitant]

REACTIONS (3)
  - DRUG TOLERANCE INCREASED [None]
  - PALPITATIONS [None]
  - SPEECH DISORDER [None]
